FAERS Safety Report 18724250 (Version 1)
Quarter: 2021Q1

REPORT INFORMATION
  Report Type: Spontaneous
  Country: US (occurrence: US)
  Receive Date: 20210108
  Receipt Date: 20210108
  Transmission Date: 20210419
  Serious: Yes (Life-Threatening)
  Sender: FDA-Public Use
  Company Number: None

PATIENT
  Age: 86 Year
  Sex: Male

DRUGS (2)
  1. HYDROXYZINE (HYDROXYZINE HCL 10MG TAB) [Suspect]
     Active Substance: HYDROXYZINE HYDROCHLORIDE
     Indication: ANXIETY
     Route: 048
     Dates: start: 20201020, end: 20201021
  2. LORAZEPAM (LORAZEPAM 2MG/ML TAB) [Suspect]
     Active Substance: LORAZEPAM
     Indication: ANXIETY
     Route: 030
     Dates: start: 20201006, end: 20201012

REACTIONS (1)
  - Respiratory distress [None]

NARRATIVE: CASE EVENT DATE: 20201021
